FAERS Safety Report 25462103 (Version 1)
Quarter: 2025Q2

REPORT INFORMATION
  Report Type: Report from Study
  Country: ZA (occurrence: ZA)
  Receive Date: 20250620
  Receipt Date: 20250620
  Transmission Date: 20250717
  Serious: Yes (Other)
  Sender: PFIZER
  Company Number: ZA-PFIZER INC-PV202500073432

PATIENT
  Age: 56 Year
  Sex: Female

DRUGS (11)
  1. METHOTREXATE SODIUM [Suspect]
     Active Substance: METHOTREXATE SODIUM
     Indication: Choriocarcinoma
  2. METHOTREXATE SODIUM [Suspect]
     Active Substance: METHOTREXATE SODIUM
     Dosage: UNK, WEEKLY
  3. METHOTREXATE SODIUM [Suspect]
     Active Substance: METHOTREXATE SODIUM
  4. ETOPOSIDE [Suspect]
     Active Substance: ETOPOSIDE
     Indication: Choriocarcinoma
  5. ETOPOSIDE [Suspect]
     Active Substance: ETOPOSIDE
  6. VINCRISTINE SULFATE [Suspect]
     Active Substance: VINCRISTINE SULFATE
     Indication: Choriocarcinoma
     Route: 040
  7. ISOVORIN [Suspect]
     Active Substance: LEUCOVORIN CALCIUM
     Indication: Choriocarcinoma
     Route: 042
  8. ISOVORIN [Suspect]
     Active Substance: LEUCOVORIN CALCIUM
     Route: 042
  9. ACTINOMYCIN D [Suspect]
     Active Substance: DACTINOMYCIN
     Indication: Choriocarcinoma
     Route: 040
  10. ACTINOMYCIN D [Suspect]
     Active Substance: DACTINOMYCIN
     Route: 040
  11. CYCLOPHOSPHAMIDE [Suspect]
     Active Substance: CYCLOPHOSPHAMIDE
     Indication: Choriocarcinoma

REACTIONS (1)
  - Myelosuppression [Unknown]
